FAERS Safety Report 4738163-0 (Version None)
Quarter: 2005Q3

REPORT INFORMATION
  Report Type: 
  Country: None (occurrence: None)
  Receive Date: 20050809
  Receipt Date: 20050617
  Transmission Date: 20060218
  Serious: Yes (Hospitalization)
  Sender: FDA-Public Use
  Company Number: US-ROCHE-408321

PATIENT
  Age: 49 Year
  Sex: Female

DRUGS (6)
  1. PEGASYS [Suspect]
     Indication: HEPATITIS C VIRUS
     Dosage: ROUTE REPORTED AS INJECTION.
     Route: 050
     Dates: start: 20050115
  2. COPEGUS [Suspect]
     Indication: HEPATITIS C VIRUS
     Route: 048
     Dates: start: 20050115, end: 20050315
  3. COPEGUS [Suspect]
     Route: 048
     Dates: start: 20050315
  4. COPEGUS [Suspect]
     Route: 048
  5. ALBUTEROL [Concomitant]
     Indication: ASTHMA
     Route: 048
  6. OXYCONTIN [Concomitant]
     Indication: PAIN
     Route: 048

REACTIONS (7)
  - ANAEMIA [None]
  - DEPRESSION [None]
  - DRUG INEFFECTIVE [None]
  - DYSPNOEA [None]
  - HERPES ZOSTER [None]
  - MEMORY IMPAIRMENT [None]
  - NEURODERMATITIS [None]
